FAERS Safety Report 8763799 (Version 1)
Quarter: 2012Q4

REPORT INFORMATION
  Report Type: 
  Country: FR (occurrence: FR)
  Receive Date: 20120829
  Receipt Date: 20120829
  Transmission Date: 20130627
  Serious: Yes (Hospitalization)
  Sender: FDA-Public Use
  Company Number: FR-PFIZER INC-2012208656

PATIENT
  Age: 79 Year
  Sex: Female

DRUGS (9)
  1. INIPOMP [Suspect]
     Indication: DIVERTICULUM OESOPHAGEAL
     Dosage: 80 mg, 1x/day
     Route: 048
     Dates: start: 1998, end: 20120714
  2. KARDEGIC [Concomitant]
     Dosage: UNK
  3. PLAVIX [Concomitant]
     Dosage: UNK
  4. CRESTOR [Concomitant]
     Dosage: UNK
  5. TRIATEC [Concomitant]
     Dosage: UNK
  6. LASILIX [Concomitant]
     Dosage: UNK
  7. CARDENSIEL [Concomitant]
     Dosage: UNK
  8. VASTAREL [Concomitant]
     Dosage: UNK
  9. APROVEL [Concomitant]
     Dosage: UNK

REACTIONS (4)
  - Hypocalcaemia [Not Recovered/Not Resolved]
  - Hypomagnesaemia [Not Recovered/Not Resolved]
  - Blood phosphorus increased [Not Recovered/Not Resolved]
  - Hypoparathyroidism [Not Recovered/Not Resolved]
